FAERS Safety Report 8099924-6 (Version None)
Quarter: 2012Q1

REPORT INFORMATION
  Report Type: 
  Country: None (occurrence: None)
  Receive Date: 20120129
  Receipt Date: 20111128
  Transmission Date: 20120608
  Serious: No
  Sender: FDA-Public Use
  Company Number: US-ABBOTT-11P-163-0878384-00

PATIENT
  Age: 63 Year
  Sex: Female

DRUGS (9)
  1. ZANTAC [Concomitant]
     Indication: DYSPEPSIA
  2. AMBIEN [Concomitant]
     Indication: PRODUCT USED FOR UNKNOWN INDICATION
     Dosage: AT BEDTIME
  3. PREDNISONE TAB [Concomitant]
     Indication: PRODUCT USED FOR UNKNOWN INDICATION
  4. HUMIRA [Suspect]
     Indication: RHEUMATOID ARTHRITIS
     Dates: start: 20111014
  5. METHOTREXATE [Concomitant]
     Indication: PRODUCT USED FOR UNKNOWN INDICATION
     Dosage: ON FRIDAYS
  6. HYDROCODONE BITARTRATE [Concomitant]
     Indication: PAIN
     Dosage: 10/500MG 4 TIMES DAILY AS REQUIRED
  7. FLEXERIL [Concomitant]
     Indication: MUSCLE SPASMS
  8. ZOLOFT [Concomitant]
     Indication: DEPRESSION
  9. LIDODERM [Concomitant]
     Indication: PAIN
     Dosage: 10/500MG 4 TIMES DAILY AS REQUIRED

REACTIONS (2)
  - APHTHOUS STOMATITIS [None]
  - ORAL PAIN [None]
